FAERS Safety Report 5084608-9 (Version None)
Quarter: 2006Q3

REPORT INFORMATION
  Report Type: 
  Country: None (occurrence: None)
  Receive Date: 20060821
  Receipt Date: 20060301
  Transmission Date: 20061208
  Serious: Yes (Hospitalization)
  Sender: FDA-Public Use
  Company Number: DE-ROCHE-438437

PATIENT
  Age: 58 Year
  Sex: Female

DRUGS (33)
  1. ZENAPAX [Suspect]
     Dosage: RECEIVED DAY 0 AS PER PROTOCOL
     Route: 042
     Dates: start: 20051012, end: 20051012
  2. ZENAPAX [Suspect]
     Dosage: TO BE GIVEN ON DAY 7 AS PER PROTOCOL
     Route: 042
     Dates: start: 20051018, end: 20051018
  3. MYCOPHENOLATE MOFETIL [Suspect]
     Route: 042
     Dates: start: 20051012, end: 20051013
  4. MYCOPHENOLATE MOFETIL [Suspect]
     Dosage: RETURN TOWARD PROTOCOL DOSE.
     Route: 042
     Dates: start: 20051013, end: 20051016
  5. MYCOPHENOLATE MOFETIL [Suspect]
     Route: 042
     Dates: start: 20051016, end: 20051020
  6. MYCOPHENOLATE MOFETIL [Suspect]
     Route: 042
     Dates: start: 20051020, end: 20051022
  7. MYCOPHENOLATE MOFETIL [Suspect]
     Route: 042
     Dates: start: 20051022, end: 20051023
  8. MYCOPHENOLATE MOFETIL [Suspect]
     Dosage: ADVERSE EVENT / TOXICITY.
     Route: 048
     Dates: start: 20051023, end: 20051115
  9. MYCOPHENOLATE MOFETIL [Suspect]
     Route: 048
     Dates: start: 20051202, end: 20060131
  10. MYCOPHENOLATE MOFETIL [Suspect]
     Route: 048
     Dates: start: 20060131
  11. TACROLIMUS [Suspect]
     Dosage: ADJUSTED TO MEET PRE-DEFINED TARGET LEVELS.
     Route: 048
     Dates: start: 20051016
  12. METHYLPREDNISOLONE [Suspect]
     Dosage: TAPERED ACCORDING TO LOCAL PROTOCOL.
     Route: 065
     Dates: start: 20051011, end: 20051013
  13. METHYLPREDNISOLONE [Suspect]
     Dosage: TREATMENT OF REJECTION.
     Route: 065
     Dates: start: 20051012, end: 20051024
  14. METHYLPREDNISOLONE [Suspect]
     Dosage: STOP TREATMENT OF REJECTION SUSPICION.
     Route: 065
     Dates: start: 20051024, end: 20051027
  15. PREDNISOLONE [Suspect]
     Dosage: TAPERED ACCORDING TO LOCAL PROTOCOL.
     Route: 065
     Dates: start: 20051014, end: 20051222
  16. TRASYLOL [Concomitant]
     Dates: start: 20051011, end: 20051011
  17. NORADRENALINE [Concomitant]
     Dates: start: 20051011, end: 20051011
  18. DOBUTREX [Concomitant]
     Indication: DRUG USE FOR UNKNOWN INDICATION
     Dosage: INDICATION REPORTED AS: INTRAOPERATIVE ANTIHYPOTON TREATMENT.
     Dates: start: 20051011, end: 20051011
  19. FENTANYL [Concomitant]
     Dates: start: 20051011, end: 20051011
  20. NIMBEX [Concomitant]
     Dates: start: 20051011, end: 20051011
  21. NOREPINEPHRINE BITARTRATE [Concomitant]
     Dosage: INDICATION REPORTED AS INTRAOPERATIVE ANTIHYPOTONE TREATMENT.
     Dates: start: 20051011, end: 20051011
  22. ETOMIDATE [Concomitant]
     Dates: start: 20051011, end: 20051011
  23. ESMERON [Concomitant]
     Dates: start: 20051011, end: 20051011
  24. 1 CONCOMITANT DRUG [Concomitant]
     Dosage: DRUG REPORTED AS: ERYTHROZYTE CONCENTRATE (5X).  INDICATION REPORTED AS: INTRAOPERATIVE ANTIAEMIC/P+
     Dates: start: 20051011, end: 20051011
  25. PLASMA [Concomitant]
     Dosage: DRUG REPORTED AS FRESH FROZEN PLASM (4X). INDICATION REPORTED AS: INTRAOPERATIVE COMPENSATION OF CO+
     Dates: start: 20051011, end: 20051011
  26. 1 CONCOMITANT DRUG [Concomitant]
     Dosage: DRUG REPORTED AS: THROMBOCYTE CONCENTRATE (2X). INDICATION REPORTED AS: INTRAOPERATIVE SUBSTITUTION.
     Dates: start: 20051011, end: 20051011
  27. 1 CONCOMITANT DRUG [Concomitant]
     Dosage: DRUG REPORTED AS GELAFUSAL. INDICATION REPORTED AS INTRAOPERATIVE THERAPY OF VOLUME DEFICIENCY.
     Dates: start: 20051011, end: 20051011
  28. METRONIDAZOLE [Concomitant]
     Indication: ANTIBIOTIC PROPHYLAXIS
     Dates: start: 20051011, end: 20051011
  29. CEFTRIAXON [Concomitant]
     Indication: ANTIBIOTIC PROPHYLAXIS
     Dates: start: 20051011, end: 20051011
  30. NACL [Concomitant]
     Dosage: REPORTED AS NACL-DILUTION 0.9%.
     Dates: start: 20051011, end: 20051011
  31. CALCIUM GLUCONATE [Concomitant]
     Dates: start: 20051011, end: 20051011
  32. ATROPINE [Concomitant]
     Dosage: INDICATION REPORTED AS: INTRAOPERATIVE SYMPATHOMIMETIC TREATMENT.
     Dates: start: 20051011, end: 20051011
  33. LASIX [Concomitant]
     Dates: start: 20051011, end: 20051011

REACTIONS (2)
  - HEPATIC ENZYME INCREASED [None]
  - HEPATOTOXICITY [None]
